FAERS Safety Report 9708972 (Version 2)
Quarter: 2013Q4

REPORT INFORMATION
  Report Type: Spontaneous
  Country: US (occurrence: US)
  Receive Date: 20131125
  Receipt Date: 20131218
  Transmission Date: 20140711
  Serious: Yes (Other)
  Sender: FDA-Public Use
  Company Number: US-PFIZER INC-2013335984

PATIENT
  Age: 74 Year
  Sex: Male
  Weight: 100 kg

DRUGS (4)
  1. GABAPENTIN [Suspect]
     Indication: NEUROPATHY PERIPHERAL
     Dosage: UNK
  2. LYRICA [Suspect]
     Indication: NEUROPATHY PERIPHERAL
     Dosage: 50 MG, 2X/DAY
     Route: 048
     Dates: start: 2011
  3. LYRICA [Suspect]
     Dosage: 75 MG, AS NEEDED
     Dates: start: 201310
  4. REQUIP [Concomitant]
     Indication: RESTLESS LEGS SYNDROME
     Dosage: UNK

REACTIONS (5)
  - Cardiac disorder [Unknown]
  - Weight increased [Unknown]
  - Neuropathy peripheral [Unknown]
  - Insomnia [Unknown]
  - Therapeutic response unexpected [Unknown]
